FAERS Safety Report 6530457-1 (Version None)
Quarter: 2010Q1

REPORT INFORMATION
  Report Type: 
  Country: None (occurrence: None)
  Receive Date: 20100106
  Receipt Date: 20100106
  Transmission Date: 20100710
  Serious: No
  Sender: FDA-Public Use
  Company Number: None

PATIENT
  Age: 62 Year
  Sex: Female
  Weight: 58.9676 kg

DRUGS (1)
  1. ACTONEL [Suspect]
     Indication: OSTEOPOROSIS
     Dosage: 150MG TAB. ONCE A MONTH
     Dates: start: 20091025

REACTIONS (9)
  - ARTHRALGIA [None]
  - BACK PAIN [None]
  - CHEST DISCOMFORT [None]
  - COUGH [None]
  - FEELING ABNORMAL [None]
  - LETHARGY [None]
  - MUSCULOSKELETAL PAIN [None]
  - OCULAR HYPERAEMIA [None]
  - PYREXIA [None]
